FAERS Safety Report 8954597 (Version 2)
Quarter: 2012Q4

REPORT INFORMATION
  Report Type: 
  Country: JP (occurrence: JP)
  Receive Date: 20121210
  Receipt Date: 20121219
  Transmission Date: 20130627
  Serious: Yes (Other)
  Sender: FDA-Public Use
  Company Number: PHHY2012JP112674

PATIENT
  Age: 68 Year
  Sex: Male

DRUGS (1)
  1. ZOLEDRONIC ACID [Suspect]
     Indication: METASTASES TO BONE
     Dosage: UNK UKN, UNK
     Route: 041

REACTIONS (5)
  - Sepsis [Recovering/Resolving]
  - Osteonecrosis of jaw [Recovering/Resolving]
  - Bone abscess [Recovering/Resolving]
  - Pain in jaw [Recovering/Resolving]
  - Purulent discharge [Recovering/Resolving]
